FAERS Safety Report 8118045-7 (Version None)
Quarter: 2012Q1

REPORT INFORMATION
  Report Type: 
  Country: None (occurrence: None)
  Receive Date: 20120207
  Receipt Date: 20120201
  Transmission Date: 20120608
  Serious: No
  Sender: FDA-Public Use
  Company Number: US-PFIZER INC-2009303434

PATIENT
  Sex: Female

DRUGS (7)
  1. XANAX [Concomitant]
     Dosage: UNK
  2. SYNTHROID [Concomitant]
     Dosage: UNK
  3. NORVASC [Suspect]
     Dosage: 5 MG, 1X/DAY
  4. MULTI-VITAMINS [Concomitant]
     Dosage: UNK
  5. ZINC [Concomitant]
     Dosage: UNK
  6. NORVASC [Suspect]
     Dosage: 2.5 MG, 2X/DAY
  7. ACCUPRIL [Suspect]
     Dosage: 20 MG, 11/2 PILLS, 2X/DAY

REACTIONS (2)
  - HYPERSENSITIVITY [None]
  - SINUS DISORDER [None]
